FAERS Safety Report 8007202-6 (Version None)
Quarter: 2011Q4

REPORT INFORMATION
  Report Type: 
  Country: None (occurrence: None)
  Receive Date: 20111227
  Receipt Date: 20111212
  Transmission Date: 20120403
  Serious: Yes (Other)
  Sender: FDA-Public Use
  Company Number: US-ENDO PHARMACEUTICALS INC.-ENDC20110210

PATIENT
  Sex: Female
  Weight: 72.64 kg

DRUGS (16)
  1. ENDOCET 10MG/650MG [Suspect]
     Dosage: 10/325
     Route: 048
     Dates: start: 20090101
  2. FUROSEMIDE [Concomitant]
     Indication: PRODUCT USED FOR UNKNOWN INDICATION
     Route: 048
  3. VITAMIN B-12 [Concomitant]
     Indication: PRODUCT USED FOR UNKNOWN INDICATION
     Dates: start: 20110817
  4. POTASSIUM CHLORIDE [Concomitant]
     Indication: PRODUCT USED FOR UNKNOWN INDICATION
     Route: 048
     Dates: start: 20110602
  5. ENDOCET 10MG/650MG [Suspect]
     Dosage: 40/2600 MG
     Route: 048
     Dates: start: 20110801
  6. FAMOTIDINE [Concomitant]
     Indication: PRODUCT USED FOR UNKNOWN INDICATION
     Route: 048
     Dates: start: 20110602
  7. LEVOTHYROXINE SODIUM [Concomitant]
     Indication: PRODUCT USED FOR UNKNOWN INDICATION
     Route: 048
     Dates: start: 20110602
  8. PREMARIN [Concomitant]
     Indication: PRODUCT USED FOR UNKNOWN INDICATION
     Route: 048
     Dates: start: 20110602
  9. COREG [Concomitant]
     Indication: PRODUCT USED FOR UNKNOWN INDICATION
     Route: 048
     Dates: start: 20110602
  10. ENDOCET 10MG/650MG [Suspect]
     Indication: PAIN
     Dosage: 80/5200 MG
     Route: 048
     Dates: start: 20090101, end: 20110801
  11. PROMETHAZINE [Concomitant]
     Indication: NAUSEA
     Route: 048
     Dates: start: 20110602
  12. TRAMADOL HCL [Concomitant]
     Indication: PRODUCT USED FOR UNKNOWN INDICATION
     Route: 048
     Dates: start: 20110602
  13. ATIVAN [Concomitant]
     Indication: PRODUCT USED FOR UNKNOWN INDICATION
     Route: 048
     Dates: start: 20110817
  14. TRAZODONE HCL [Concomitant]
     Indication: PRODUCT USED FOR UNKNOWN INDICATION
     Route: 048
  15. PHENERGAN [Concomitant]
     Indication: NAUSEA
     Dosage: 50 MG/ML
     Route: 048
     Dates: start: 20110920
  16. PRAVASTATIN [Concomitant]
     Route: 048
     Dates: start: 20110602

REACTIONS (3)
  - LOSS OF CONSCIOUSNESS [None]
  - HEADACHE [None]
  - ABDOMINAL PAIN UPPER [None]
